FAERS Safety Report 8002879-3 (Version None)
Quarter: 2011Q4

REPORT INFORMATION
  Report Type: 
  Country: None (occurrence: None)
  Receive Date: 20111222
  Receipt Date: 20110124
  Transmission Date: 20120403
  Serious: No
  Sender: FDA-Public Use
  Company Number: US-GLAXOSMITHKLINE-A0908611A

PATIENT
  Age: 64 Year
  Sex: Male
  Weight: 77.3 kg

DRUGS (2)
  1. AVODART [Suspect]
     Indication: BENIGN PROSTATIC HYPERPLASIA
     Dosage: 1CAP PER DAY
     Route: 048
     Dates: start: 20081222, end: 20110110
  2. STATINS [Concomitant]

REACTIONS (2)
  - PRURITUS [None]
  - FLATULENCE [None]
